FAERS Safety Report 8612085-7 (Version None)
Quarter: 2012Q3

REPORT INFORMATION
  Report Type: 
  Country: None (occurrence: None)
  Receive Date: 20120822
  Receipt Date: 20120813
  Transmission Date: 20120928
  Serious: No
  Sender: FDA-Public Use
  Company Number: US-ASTRAZENECA-2012SE57345

PATIENT
  Age: 49 Year
  Sex: Female

DRUGS (2)
  1. NITROSTAT [Concomitant]
  2. NEXIUM [Suspect]
     Route: 048

REACTIONS (5)
  - DRUG DOSE OMISSION [None]
  - OESOPHAGEAL SPASM [None]
  - DYSPHAGIA [None]
  - MALAISE [None]
  - INTENTIONAL DRUG MISUSE [None]
